FAERS Safety Report 4504980-5 (Version None)
Quarter: 2004Q4

REPORT INFORMATION
  Report Type: 
  Country: None (occurrence: None)
  Receive Date: 20041015
  Receipt Date: 20040105
  Transmission Date: 20050328
  Serious: Yes (Other)
  Sender: FDA-Public Use
  Company Number: 2004001003

PATIENT
  Age: 40 Year
  Sex: Male
  Weight: 83.9154 kg

DRUGS (2)
  1. NEURONTIN [Suspect]
     Indication: NEURALGIA
     Dosage: 600 MG (BID) ORAL
     Route: 048
     Dates: start: 20020901
  2. CLONAZEPAM [Concomitant]

REACTIONS (11)
  - ABDOMINAL PAIN [None]
  - CONVULSION [None]
  - DEAFNESS [None]
  - DIZZINESS [None]
  - DYSPEPSIA [None]
  - EAR DISORDER [None]
  - INTENTIONAL OVERDOSE [None]
  - MEDICATION ERROR [None]
  - NEURALGIA [None]
  - SEDATION [None]
  - VESTIBULAR DISORDER [None]
